FAERS Safety Report 14354947 (Version 1)
Quarter: 2018Q1

REPORT INFORMATION
  Report Type: Spontaneous
  Country: FR (occurrence: FR)
  Receive Date: 20180105
  Receipt Date: 20180105
  Transmission Date: 20180509
  Serious: Yes (Hospitalization)
  Sender: FDA-Public Use
  Company Number: FR-BRISTOL-MYERS SQUIBB COMPANY-BMS-2017-119876

PATIENT
  Sex: Female

DRUGS (4)
  1. LOVENOX [Suspect]
     Active Substance: ENOXAPARIN SODIUM
     Indication: EMBOLISM VENOUS
     Dosage: 1.6 ML, DAILY
     Route: 065
     Dates: start: 20170415, end: 20170930
  2. PANTOPRAZOLE [Suspect]
     Active Substance: PANTOPRAZOLE
     Indication: MALLORY-WEISS SYNDROME
     Dosage: 20 MG, DAILY
     Route: 065
     Dates: start: 20170624, end: 20170724
  3. ELIQUIS [Suspect]
     Active Substance: APIXABAN
     Indication: THROMBOSIS PROPHYLAXIS
     Dosage: 2 DF, DAILY
     Route: 065
     Dates: start: 20170402, end: 20170415
  4. INNOHEP [Suspect]
     Active Substance: TINZAPARIN SODIUM
     Indication: EMBOLISM VENOUS
     Dosage: 0.7 ML, DAILY
     Route: 058
     Dates: start: 20170517, end: 20170924

REACTIONS (2)
  - Premature delivery [Unknown]
  - Maternal exposure timing unspecified [Recovered/Resolved]

NARRATIVE: CASE EVENT DATE: 20170930
